FAERS Safety Report 18431971 (Version 3)
Quarter: 2020Q4

REPORT INFORMATION
  Report Type: Report from Study
  Country: CA (occurrence: CA)
  Receive Date: 20201027
  Receipt Date: 20201202
  Transmission Date: 20210114
  Serious: Yes (Hospitalization, Other)
  Sender: FDA-Public Use
  Company Number: CA-JNJFOC-20200700733

PATIENT
  Age: 64 Year
  Sex: Male
  Weight: 78.1 kg

DRUGS (2)
  1. REMICADE [Suspect]
     Active Substance: INFLIXIMAB
     Route: 042
  2. REMICADE [Suspect]
     Active Substance: INFLIXIMAB
     Indication: COLITIS ULCERATIVE
     Dosage: ON 30-JUN-2020 THE PATIENT RECEIVED HIS 5TH (5MG/KG) REMICADE INFUSION.
     Route: 042
     Dates: start: 20200128

REACTIONS (3)
  - Haemorrhage urinary tract [Unknown]
  - Bladder cancer [Not Recovered/Not Resolved]
  - Haematochezia [Unknown]

NARRATIVE: CASE EVENT DATE: 2020
